FAERS Safety Report 7206354-5 (Version None)
Quarter: 2010Q4

REPORT INFORMATION
  Report Type: 
  Country: None (occurrence: None)
  Receive Date: 20101221
  Receipt Date: 20101204
  Transmission Date: 20110411
  Serious: Yes (Hospitalization, Other)
  Sender: FDA-Public Use
  Company Number: 2010AP002598

PATIENT
  Age: 67 Year
  Sex: Female

DRUGS (1)
  1. METFORMIN HCL [Suspect]
     Indication: TYPE 2 DIABETES MELLITUS

REACTIONS (5)
  - BLINDNESS TRANSIENT [None]
  - HAEMODIALYSIS [None]
  - HYPERKALAEMIA [None]
  - LACTIC ACIDOSIS [None]
  - RESPIRATORY RATE INCREASED [None]
